FAERS Safety Report 7680171-4 (Version None)
Quarter: 2011Q3

REPORT INFORMATION
  Report Type: 
  Country: None (occurrence: None)
  Receive Date: 20110812
  Receipt Date: 20110802
  Transmission Date: 20111222
  Serious: Yes (Hospitalization, Other)
  Sender: FDA-Public Use
  Company Number: US-BAYER-201036047NA

PATIENT
  Age: 27 Year
  Sex: Female
  Weight: 104.31 kg

DRUGS (7)
  1. PREVACID [Concomitant]
     Indication: GASTROOESOPHAGEAL REFLUX DISEASE
     Dosage: 30 MG, QD
     Route: 048
  2. HALFLYTELY [MACROGOL,POTASSIUM CHLORIDE,SODIUM BICARBONATE] [Concomitant]
  3. YASMIN [Suspect]
     Indication: MENSTRUATION IRREGULAR
     Dosage: UNK
     Route: 048
     Dates: start: 20041001, end: 20050901
  4. IBUPROFEN [Concomitant]
  5. LEVOTHYROXINE SODIUM [Concomitant]
     Indication: HYPOTHYROIDISM
     Dosage: 0.075 MG, QD
  6. FLAGYL [Concomitant]
     Dosage: 250 MG, QID
     Route: 048
  7. NEXIUM [Concomitant]
     Indication: GALLBLADDER DISORDER
     Dosage: 40 MG, QD
     Route: 048

REACTIONS (4)
  - PULMONARY EMBOLISM [None]
  - CHOLELITHIASIS [None]
  - GALLBLADDER DISORDER [None]
  - CHOLECYSTITIS CHRONIC [None]
